FAERS Safety Report 16651438 (Version 1)
Quarter: 2019Q3

REPORT INFORMATION
  Report Type: Spontaneous
  Country: US (occurrence: US)
  Receive Date: 20190731
  Receipt Date: 20190731
  Transmission Date: 20191004
  Serious: No
  Sender: FDA-Public Use
  Company Number: US-IMPAX LABORATORIES, LLC-2018-IPXL-02578

PATIENT
  Sex: Female

DRUGS (1)
  1. ALBENZA [Suspect]
     Active Substance: ALBENDAZOLE
     Indication: HELMINTHIC INFECTION
     Dosage: UNK
     Route: 048
     Dates: start: 2008

REACTIONS (6)
  - Liver disorder [Unknown]
  - Drug ineffective [Unknown]
  - Pruritus [Unknown]
  - Dermatitis [Unknown]
  - Abdominal pain [Unknown]
  - Yellow skin [Unknown]
